FAERS Safety Report 8281650-1 (Version None)
Quarter: 2012Q2

REPORT INFORMATION
  Report Type: 
  Country: None (occurrence: None)
  Receive Date: 20120413
  Receipt Date: 20120406
  Transmission Date: 20120825
  Serious: Yes (Other)
  Sender: FDA-Public Use
  Company Number: JP-PFIZER INC-2012054821

PATIENT
  Age: 7 Year
  Sex: Male

DRUGS (9)
  1. TRACLEER [Concomitant]
     Dosage: UNK
  2. RISPERDAL [Concomitant]
     Dosage: UNK
  3. STRATTERA [Concomitant]
     Dosage: UNK
  4. SILDENAFIL CITRATE [Suspect]
     Indication: PULMONARY HYPERTENSION
     Dosage: 10 MG, 2X/DAY
     Route: 048
  5. LASIX [Concomitant]
     Dosage: UNK
  6. WARFARIN [Concomitant]
     Dosage: 0.65 G, UNK
  7. LOSARTAN POTASSIUM [Concomitant]
     Dosage: 15 MG, UNK
  8. ASPIRIN [Concomitant]
     Dosage: 0.05 G, UNK
  9. EPLERENONE [Suspect]
     Dosage: 20MG/DAY
     Route: 048

REACTIONS (3)
  - GENERALISED OEDEMA [None]
  - OEDEMA [None]
  - PULMONARY THROMBOSIS [None]
